FAERS Safety Report 11052496 (Version 1)
Quarter: 2015Q2

REPORT INFORMATION
  Report Type: Spontaneous
  Country: US (occurrence: US)
  Receive Date: 20150421
  Receipt Date: 20150421
  Transmission Date: 20150821
  Serious: No
  Sender: FDA-Public Use
  Company Number: US-PFIZER INC-2015129430

PATIENT
  Age: 21 Year
  Sex: Female

DRUGS (2)
  1. ALEVE [Interacting]
     Active Substance: NAPROXEN SODIUM
     Indication: DYSMENORRHOEA
     Dosage: UNK
     Dates: start: 20150408, end: 20150408
  2. ADVIL [Suspect]
     Active Substance: IBUPROFEN
     Indication: DYSMENORRHOEA
     Dosage: 400 MG, AS NEEDED
     Route: 048
     Dates: start: 20150408, end: 20150408

REACTIONS (1)
  - Potentiating drug interaction [Unknown]

NARRATIVE: CASE EVENT DATE: 20150408
